FAERS Safety Report 8362695-X (Version None)
Quarter: 2012Q2

REPORT INFORMATION
  Report Type: 
  Country: None (occurrence: None)
  Receive Date: 20120514
  Receipt Date: 20120508
  Transmission Date: 20120825
  Serious: Yes (Hospitalization, Other)
  Sender: FDA-Public Use
  Company Number: 2011SP038678

PATIENT
  Sex: Male

DRUGS (3)
  1. TELAPREVIR [Suspect]
     Indication: HEPATITIS C
     Dates: start: 20110607, end: 20120207
  2. PEG-INTRON [Suspect]
     Indication: HEPATITIS C
     Dates: start: 20110607, end: 20120207
  3. RIBAVIRIN [Suspect]
     Indication: HEPATITIS C
     Dates: start: 20110607, end: 20120207

REACTIONS (18)
  - BALANCE DISORDER [None]
  - MUSCLE SPASMS [None]
  - INFLUENZA LIKE ILLNESS [None]
  - HEPATIC PAIN [None]
  - ALOPECIA [None]
  - HYPERHIDROSIS [None]
  - PRURITUS [None]
  - FALL [None]
  - BLOOD GLUCOSE INCREASED [None]
  - GENERALISED OEDEMA [None]
  - SUBSTANCE ABUSE [None]
  - GAIT DISTURBANCE [None]
  - BLOOD GLUCOSE ABNORMAL [None]
  - INJECTION SITE RASH [None]
  - DIZZINESS [None]
  - VOMITING [None]
  - INJECTION SITE PAIN [None]
  - BLISTER [None]
